FAERS Safety Report 24022288 (Version 1)
Quarter: 2024Q2

REPORT INFORMATION
  Report Type: Spontaneous
  Country: US (occurrence: US)
  Receive Date: 20240627
  Receipt Date: 20240627
  Transmission Date: 20240716
  Serious: No
  Sender: FDA-Public Use
  Company Number: US-ROCHE-3545666

PATIENT
  Sex: Female
  Weight: 65.77 kg

DRUGS (1)
  1. VABYSMO [Suspect]
     Active Substance: FARICIMAB\FARICIMAB-SVOA
     Indication: Myopia
     Dosage: LEFT EYE, SHE STATED THAT HER LAST VABYSMO INJECTION WAS ON 05/APR/2024
     Route: 050
     Dates: start: 202401

REACTIONS (4)
  - Off label use [Unknown]
  - Headache [Recovered/Resolved]
  - Visual impairment [Recovered/Resolved]
  - Vision blurred [Unknown]

NARRATIVE: CASE EVENT DATE: 20240101
